FAERS Safety Report 4316191-7 (Version None)
Quarter: 2004Q1

REPORT INFORMATION
  Report Type: 
  Country: None (occurrence: None)
  Receive Date: 20040312
  Receipt Date: 20031218
  Transmission Date: 20041129
  Serious: Yes (Death)
  Sender: FDA-Public Use
  Company Number: US-GLAXOSMITHKLINE-A0444057A

PATIENT
  Age: 73 Year
  Sex: Male
  Weight: 100 kg

DRUGS (9)
  1. PAXIL [Suspect]
     Indication: DEPRESSION
     Dosage: 10MG PER DAY
     Route: 048
     Dates: end: 20021226
  2. LANOXIN [Concomitant]
     Route: 065
  3. WARFARIN SODIUM [Concomitant]
     Route: 065
  4. HYDROCODONE APAP [Concomitant]
  5. AMBIEN [Concomitant]
  6. METHOTREXATE [Concomitant]
  7. DIAZEPAM [Concomitant]
  8. NIFEDIPINE [Concomitant]
  9. FOLIC ACID [Concomitant]

REACTIONS (4)
  - COMPLETED SUICIDE [None]
  - HOMICIDAL IDEATION [None]
  - PERSONALITY CHANGE [None]
  - SUICIDAL IDEATION [None]
